FAERS Safety Report 11077745 (Version 1)
Quarter: 2015Q2

REPORT INFORMATION
  Report Type: Report from Study
  Country: FR (occurrence: FR)
  Receive Date: 20150430
  Receipt Date: 20150430
  Transmission Date: 20150821
  Serious: Yes (Death, Hospitalization, Other)
  Sender: FDA-Public Use
  Company Number: FR-ROCHE-1164655

PATIENT
  Age: 70 Year
  Sex: Female

DRUGS (12)
  1. CORTANCYL [Concomitant]
     Active Substance: PREDNISONE
     Route: 065
     Dates: start: 20070509
  2. ACTONEL [Concomitant]
     Active Substance: RISEDRONATE SODIUM
     Route: 065
  3. CACIT D3 [Concomitant]
     Active Substance: CALCIUM\CHOLECALCIFEROL
     Route: 065
  4. PLAVIX [Concomitant]
     Active Substance: CLOPIDOGREL BISULFATE
  5. RITUXIMAB [Suspect]
     Active Substance: RITUXIMAB
     Indication: RHEUMATOID ARTHRITIS
     Route: 065
     Dates: start: 20070424, end: 20070509
  6. BISOPROLOL [Concomitant]
     Active Substance: BISOPROLOL
     Route: 065
  7. MOPRAL [Concomitant]
     Active Substance: OMEPRAZOLE SODIUM
  8. INEGY [Concomitant]
     Active Substance: EZETIMIBE\SIMVASTATIN
  9. LEFLUNOMIDE. [Concomitant]
     Active Substance: LEFLUNOMIDE
     Route: 065
     Dates: start: 20070913
  10. LEFLUNOMIDE. [Concomitant]
     Active Substance: LEFLUNOMIDE
     Dosage: 27-APR-2007,
     Route: 065
     Dates: start: 20070509
  11. CRESTOR [Concomitant]
     Active Substance: ROSUVASTATIN CALCIUM
     Route: 065
     Dates: start: 20070509
  12. LERCAN [Concomitant]
     Active Substance: LERCANIDIPINE

REACTIONS (14)
  - Acute kidney injury [Recovered/Resolved]
  - Joint prosthesis user [Unknown]
  - Pyrexia [Recovered/Resolved]
  - Genitourinary tract infection [Unknown]
  - Pyelonephritis [Recovered/Resolved]
  - Escherichia bacteraemia [Recovered/Resolved]
  - Death [Fatal]
  - Acute coronary syndrome [Recovered/Resolved]
  - Diarrhoea [Not Recovered/Not Resolved]
  - Colitis ulcerative [Recovered/Resolved]
  - Spinal compression fracture [Not Recovered/Not Resolved]
  - Septic shock [Recovered/Resolved]
  - Thoracic vertebral fracture [Unknown]
  - Anaemia postoperative [Unknown]

NARRATIVE: CASE EVENT DATE: 20070427
